FAERS Safety Report 6212141-7 (Version None)
Quarter: 2009Q2

REPORT INFORMATION
  Report Type: 
  Country: None (occurrence: None)
  Receive Date: 20090602
  Receipt Date: 20090526
  Transmission Date: 20091009
  Serious: Yes (Other)
  Sender: FDA-Public Use
  Company Number: PHHY2009DE20923

PATIENT
  Age: 52 Year
  Sex: Female

DRUGS (1)
  1. IMATINIB MESYLATE [Suspect]
     Indication: CHRONIC MYELOID LEUKAEMIA
     Dosage: 400 MG DAILY

REACTIONS (5)
  - BLAST CRISIS IN MYELOGENOUS LEUKAEMIA [None]
  - DRUG RESISTANCE [None]
  - LEUKAEMIA RECURRENT [None]
  - OSTEOLYSIS [None]
  - STEM CELL TRANSPLANT [None]
